FAERS Safety Report 17356866 (Version 2)
Quarter: 2020Q2

REPORT INFORMATION
  Report Type: Spontaneous
  Country: GR (occurrence: GR)
  Receive Date: 20200131
  Receipt Date: 20200528
  Transmission Date: 20200713
  Serious: Yes (Death, Other)
  Sender: FDA-Public Use
  Company Number: GR-SEATTLE GENETICS-2019SGN05173

PATIENT
  Age: 70 Year
  Sex: Male

DRUGS (5)
  1. DEXAMETHASONE. [Concomitant]
     Active Substance: DEXAMETHASONE
     Indication: PRODUCT USED FOR UNKNOWN INDICATION
     Dosage: 40 MILLIGRAM
     Route: 042
  2. GEMCITABINE. [Concomitant]
     Active Substance: GEMCITABINE
     Indication: HODGKIN^S DISEASE
     Dosage: UNK
     Route: 065
  3. ADCETRIS [Suspect]
     Active Substance: BRENTUXIMAB VEDOTIN
     Indication: HODGKIN^S DISEASE
     Dosage: 1.2 MILLIGRAM/KILOGRAM, Q3WEEKS
     Route: 042
  4. ADCETRIS [Suspect]
     Active Substance: BRENTUXIMAB VEDOTIN
     Dosage: 1.8 MILLIGRAM/KILOGRAM, Q3WEEKS
     Route: 042
  5. VINORELBINE [Suspect]
     Active Substance: VINORELBINE TARTRATE
     Indication: HODGKIN^S DISEASE
     Dosage: UNK
     Route: 065

REACTIONS (16)
  - Hyperbilirubinaemia [Fatal]
  - Off label use [Fatal]
  - Pyrexia [Fatal]
  - Hypersensitivity [Fatal]
  - Lymphadenopathy [Fatal]
  - Interstitial lung disease [Fatal]
  - Thrombocytopenia [Fatal]
  - Death [Fatal]
  - Septic shock [Fatal]
  - Anaemia [Fatal]
  - Jaundice [Fatal]
  - Product use in unapproved indication [Fatal]
  - Inappropriate schedule of product administration [Fatal]
  - Hepatic function abnormal [Fatal]
  - Altered state of consciousness [Fatal]
  - Acute coronary syndrome [Fatal]
